FAERS Safety Report 20589487 (Version 2)
Quarter: 2024Q2

REPORT INFORMATION
  Report Type: Report from Study
  Country: GB (occurrence: GB)
  Receive Date: 20220314
  Receipt Date: 20240522
  Transmission Date: 20240716
  Serious: Yes (Hospitalization, Other)
  Sender: FDA-Public Use
  Company Number: GB-CELGENE-GBR-20181009280

PATIENT
  Age: 88 Year
  Sex: Male
  Weight: 116 kg

DRUGS (5)
  1. DEXAMETHASONE [Suspect]
     Active Substance: DEXAMETHASONE
     Indication: Plasma cell myeloma
     Dosage: DOSAGE TEXT: 2 MILLIGRAM
     Route: 065
     Dates: start: 20180709, end: 20180730
  2. DEXAMETHASONE [Suspect]
     Active Substance: DEXAMETHASONE
     Indication: Plasma cell myeloma
     Dosage: DOSAGE TEXT: 20 MILLIGRAM
     Route: 065
     Dates: start: 20151001, end: 20151022
  3. POMALIDOMIDE [Suspect]
     Active Substance: POMALIDOMIDE
     Indication: Plasma cell myeloma
     Dosage: DOSAGE TEXT: 4 MILLIGRAM
     Route: 048
     Dates: start: 20180709, end: 20180729
  4. POMALIDOMIDE [Suspect]
     Active Substance: POMALIDOMIDE
     Indication: Plasma cell myeloma
     Dosage: DOSAGE TEXT: 4 MILLIGRAM
     Route: 048
     Dates: start: 20151001, end: 20151021
  5. IXAZOMIB [Suspect]
     Active Substance: IXAZOMIB
     Indication: Plasma cell myeloma
     Route: 065

REACTIONS (3)
  - Hypervolaemia [Recovered/Resolved]
  - Cardiac failure [Recovered/Resolved]
  - Neutropenia [Recovered/Resolved]

NARRATIVE: CASE EVENT DATE: 20180822
